FAERS Safety Report 13757817 (Version 1)
Quarter: 2017Q3

REPORT INFORMATION
  Report Type: Report from Study
  Country: CA (occurrence: CA)
  Receive Date: 20170717
  Receipt Date: 20170717
  Transmission Date: 20171127
  Serious: Yes (Hospitalization)
  Sender: FDA-Public Use
  Company Number: CA-AMGEN-CANSL2017106184

PATIENT
  Age: 48 Year
  Sex: Female
  Weight: 54.3 kg

DRUGS (1)
  1. KYPROLIS [Suspect]
     Active Substance: CARFILZOMIB
     Indication: PLASMA CELL MYELOMA
     Dosage: 60 MG, (DAY 1, 2, 8, 9 COMPLETED AND DAY 15, 16 NOT COMPLETED)
     Route: 042
     Dates: start: 20170605, end: 20170613

REACTIONS (1)
  - Unevaluable event [Unknown]

NARRATIVE: CASE EVENT DATE: 201706
